FAERS Safety Report 18052923 (Version 1)
Quarter: 2020Q3

REPORT INFORMATION
  Report Type: Report from Study
  Country: None (occurrence: BR)
  Receive Date: 20200721
  Receipt Date: 20200721
  Transmission Date: 20201103
  Serious: Yes (Other)
  Sender: FDA-Public Use
  Company Number: BR-ABBVIE-20K-020-3489311-00

PATIENT
  Sex: Female
  Weight: 71 kg

DRUGS (1)
  1. HUMIRA [Suspect]
     Active Substance: ADALIMUMAB
     Indication: RHEUMATOID ARTHRITIS
     Route: 058
     Dates: start: 20200620

REACTIONS (10)
  - Sleep disorder [Unknown]
  - Malaise [Unknown]
  - Diarrhoea [Unknown]
  - Depression [Unknown]
  - Fibromyalgia [Unknown]
  - Pain [Unknown]
  - Arthralgia [Unknown]
  - Anxiety [Unknown]
  - Mobility decreased [Unknown]
  - Gait inability [Unknown]

NARRATIVE: CASE EVENT DATE: 2020
